FAERS Safety Report 4550746-X (Version None)
Quarter: 2004Q4

REPORT INFORMATION
  Report Type: 
  Country: None (occurrence: None)
  Receive Date: 20041217
  Receipt Date: 20040924
  Transmission Date: 20050328
  Serious: No
  Sender: FDA-Public Use
  Company Number: 2004-BP-08713BP

PATIENT
  Age: 74 Year
  Sex: Female

DRUGS (6)
  1. SPIRIVA [Suspect]
     Indication: CHRONIC OBSTRUCTIVE AIRWAYS DISEASE
     Dosage: 18 MCG (18 MCG 1 PUFF) IH
     Route: 055
     Dates: start: 20040902
  2. ADVAIR (SERETIDE MITE) [Concomitant]
  3. LOTENSIN [Concomitant]
  4. XALATAN [Concomitant]
  5. ALBUTEROL [Concomitant]
  6. SPIRIVA [Suspect]

REACTIONS (3)
  - DRY MOUTH [None]
  - HOARSENESS [None]
  - VEIN DISORDER [None]
